FAERS Safety Report 16378631 (Version 1)
Quarter: 2019Q2

REPORT INFORMATION
  Report Type: Spontaneous
  Country: US (occurrence: US)
  Receive Date: 20190531
  Receipt Date: 20190531
  Transmission Date: 20190711
  Serious: No
  Sender: FDA-Public Use
  Company Number: US-GALDERMA-US18029901

PATIENT
  Age: 28 Year
  Sex: Female

DRUGS (3)
  1. PROACTIV REPAIRING CONCEALER 4 BLENDABLE [Concomitant]
     Route: 061
     Dates: start: 20180128, end: 20180328
  2. PROACTIV MD ADAPALENE ACNE TREATMENT [Suspect]
     Active Substance: ADAPALENE
     Indication: PRODUCT USED FOR UNKNOWN INDICATION
     Dosage: 0.1 % (PEA TO A DIME SIZE)
     Route: 061
     Dates: start: 20180128, end: 20180328
  3. PROACTIV SOLUTION BLACKHEAD DISSOLVING [Concomitant]
     Active Substance: SALICYLIC ACID
     Route: 061
     Dates: start: 20180128, end: 20180328

REACTIONS (3)
  - Skin burning sensation [Recovered/Resolved]
  - Rash macular [Recovered/Resolved]
  - Erythema [Recovered/Resolved]

NARRATIVE: CASE EVENT DATE: 20180328
